FAERS Safety Report 9455458 (Version 2)
Quarter: 2013Q3

REPORT INFORMATION
  Report Type: Spontaneous
  Country: GB (occurrence: GB)
  Receive Date: 20130813
  Receipt Date: 20130823
  Transmission Date: 20140515
  Serious: Yes (Other)
  Sender: FDA-Public Use
  Company Number: GB-JNJFOC-20130709051

PATIENT
  Sex: Female
  Weight: 67 kg

DRUGS (4)
  1. SIMPONI [Suspect]
     Indication: PSORIATIC ARTHROPATHY
     Route: 058
     Dates: start: 20120315
  2. SIMPONI [Suspect]
     Indication: PSORIATIC ARTHROPATHY
     Route: 058
     Dates: start: 20130630
  3. ETORICOXIB [Concomitant]
     Indication: PAIN MANAGEMENT
     Route: 065
     Dates: start: 2011
  4. MORPHINE [Concomitant]
     Indication: PAIN MANAGEMENT
     Route: 065
     Dates: start: 201205

REACTIONS (3)
  - Immunodeficiency [Unknown]
  - Infection [Recovered/Resolved]
  - Gingival injury [Recovered/Resolved]
